FAERS Safety Report 9208827 (Version 1)
Quarter: 2013Q2

REPORT INFORMATION
  Report Type: Spontaneous
  Country: US (occurrence: US)
  Receive Date: 20130404
  Receipt Date: 20130404
  Transmission Date: 20140414
  Serious: No
  Sender: FDA-Public Use
  Company Number: US-PFIZER INC-2013102222

PATIENT
  Age: 48 Year
  Sex: Male
  Weight: 89.8 kg

DRUGS (4)
  1. RAPAMUNE [Suspect]
     Indication: RENAL TRANSPLANT
     Dosage: 5 MG, ONCE A DAY (5 TABLETS OF 1MG TO MAKE A TOTAL DOSE OF 5MG)
     Route: 048
     Dates: start: 20130308
  2. PREDNISONE [Concomitant]
     Indication: RENAL TRANSPLANT
     Dosage: UNK
  3. MYFORTIC [Concomitant]
     Indication: RENAL TRANSPLANT
     Dosage: UNK
  4. PRAVACHOL [Concomitant]
     Indication: BLOOD CHOLESTEROL INCREASED
     Dosage: UNK

REACTIONS (4)
  - Facial pain [Unknown]
  - Pain of skin [Unknown]
  - Pain in jaw [Unknown]
  - Headache [Unknown]
